FAERS Safety Report 25197104 (Version 1)
Quarter: 2025Q2

REPORT INFORMATION
  Report Type: Spontaneous
  Country: PL (occurrence: PL)
  Receive Date: 20250415
  Receipt Date: 20250415
  Transmission Date: 20250717
  Serious: Yes (Life-Threatening, Hospitalization, Other)
  Sender: CELLTRION
  Company Number: None

PATIENT

DRUGS (1)
  1. RITUXIMAB [Suspect]
     Active Substance: RITUXIMAB
     Indication: Non-Hodgkin^s lymphoma
     Route: 042
     Dates: start: 20200513, end: 20200513

REACTIONS (4)
  - Dyspnoea at rest [Recovered/Resolved]
  - Arrhythmia [Recovered/Resolved]
  - Bronchospasm [Recovered/Resolved]
  - Chills [Recovered/Resolved]

NARRATIVE: CASE EVENT DATE: 20200513
